FAERS Safety Report 17325738 (Version 1)
Quarter: 2020Q1

REPORT INFORMATION
  Report Type: Spontaneous
  Country: FR (occurrence: FR)
  Receive Date: 20200127
  Receipt Date: 20200127
  Transmission Date: 20200409
  Serious: Yes (Hospitalization)
  Sender: FDA-Public Use
  Company Number: NVSC2020FR014022

PATIENT
  Age: 42 Year
  Sex: Female
  Weight: 75 kg

DRUGS (2)
  1. IBUPROFEN. [Suspect]
     Active Substance: IBUPROFEN
     Indication: SINUSITIS
     Dosage: 1 DF, QD
     Route: 048
     Dates: start: 20191005, end: 20191006
  2. PREDNISONE. [Concomitant]
     Active Substance: PREDNISONE
     Indication: PRODUCT USED FOR UNKNOWN INDICATION
     Dosage: NON PR?CIS?
     Route: 048
     Dates: start: 20191005, end: 20191008

REACTIONS (5)
  - Lung abscess [Recovering/Resolving]
  - Pyrexia [Recovered/Resolved]
  - Pleural effusion [Recovering/Resolving]
  - Chest pain [Recovering/Resolving]
  - Dyspnoea [Recovered/Resolved]

NARRATIVE: CASE EVENT DATE: 20191005
